FAERS Safety Report 5825968-8 (Version None)
Quarter: 2008Q3

REPORT INFORMATION
  Report Type: 
  Country: None (occurrence: None)
  Receive Date: 20080729
  Receipt Date: 20080724
  Transmission Date: 20090109
  Serious: Yes (Hospitalization)
  Sender: FDA-Public Use
  Company Number: PHBS2008DE05201

PATIENT
  Sex: Male

DRUGS (6)
  1. PANTOPRAZOLE SODIUM [Suspect]
     Dosage: UNK
     Route: 048
     Dates: start: 20080717
  2. ESIDRIX [Suspect]
     Dosage: UNK
     Route: 048
     Dates: start: 20080717, end: 20080717
  3. TREVILOR [Suspect]
     Dosage: 750 MG, ONCE/SINGLE
     Route: 048
     Dates: start: 20080717, end: 20080717
  4. BISOPROLOL FUMARATE [Suspect]
     Dosage: UNK
     Route: 048
     Dates: start: 20080717, end: 20080717
  5. MORPHINE [Suspect]
     Dosage: UNK
     Route: 048
     Dates: start: 20080717, end: 20080717
  6. RAMIPRIL [Suspect]
     Dosage: UNK
     Route: 048
     Dates: start: 20080717, end: 20080717

REACTIONS (2)
  - INTENTIONAL OVERDOSE [None]
  - SUICIDE ATTEMPT [None]
